FAERS Safety Report 20686761 (Version 2)
Quarter: 2022Q2

REPORT INFORMATION
  Report Type: Spontaneous
  Country: US (occurrence: US)
  Receive Date: 20220407
  Receipt Date: 20220419
  Transmission Date: 20220720
  Serious: No
  Sender: FDA-Public Use
  Company Number: US-SANOFI-01047076

PATIENT
  Age: 65 Year
  Sex: Male

DRUGS (1)
  1. LANTUS SOLOSTAR [Suspect]
     Active Substance: INSULIN GLARGINE
     Indication: Dermatitis allergic
     Dosage: 40 U, QD
     Dates: start: 202203

REACTIONS (4)
  - Limb discomfort [Unknown]
  - Back disorder [Unknown]
  - Seasonal allergy [Unknown]
  - Product use in unapproved indication [Unknown]
